FAERS Safety Report 23954936 (Version 1)
Quarter: 2024Q2

REPORT INFORMATION
  Report Type: Spontaneous
  Country: FR (occurrence: FR)
  Receive Date: 20240610
  Receipt Date: 20240610
  Transmission Date: 20240716
  Serious: Yes (Life-Threatening, Hospitalization, Other)
  Sender: FDA-Public Use
  Company Number: FR-CELLTRION INC.-2024FR013475

PATIENT

DRUGS (15)
  1. RITUXIMAB [Suspect]
     Active Substance: RITUXIMAB
     Indication: B-cell lymphoma
     Dosage: 750 MG, TOTAL
     Route: 042
     Dates: start: 20220819, end: 20220819
  2. PROCARBAZINE HYDROCHLORIDE [Suspect]
     Active Substance: PROCARBAZINE HYDROCHLORIDE
     Indication: B-cell lymphoma
     Dosage: 200 MG, QD
     Route: 048
     Dates: start: 20220818, end: 20220823
  3. ACYCLOVIR [Suspect]
     Active Substance: ACYCLOVIR
     Indication: Stomatitis
     Dosage: 600 MG, QD
     Route: 042
     Dates: start: 20220825, end: 20220829
  4. METHOTREXATE [Suspect]
     Active Substance: METHOTREXATE
     Indication: B-cell lymphoma
     Dosage: 7000 MG, TOTAL
     Route: 042
     Dates: start: 20220817, end: 20220818
  5. VALACYCLOVIR [Suspect]
     Active Substance: VALACYCLOVIR HYDROCHLORIDE
     Indication: Antiviral prophylaxis
     Dosage: 1 G, QD
     Route: 048
     Dates: start: 20220818, end: 20220825
  6. VINCRISTINE SULFATE [Suspect]
     Active Substance: VINCRISTINE SULFATE
     Indication: B-cell lymphoma
     Dosage: 2.8 MG, TOTAL
     Route: 042
     Dates: start: 20220818, end: 20220818
  7. MILNACIPRAN [Concomitant]
     Active Substance: MILNACIPRAN
  8. MOVICOL [Concomitant]
     Active Substance: POLYETHYLENE GLYCOL 3350\POTASSIUM CHLORIDE\SODIUM BICARBONATE\SODIUM CHLORIDE
  9. CLONAZEPAM [Concomitant]
     Active Substance: CLONAZEPAM
  10. LOVENOX [Concomitant]
     Active Substance: ENOXAPARIN SODIUM
  11. METHYLPREDNISOLONE [Concomitant]
     Active Substance: METHYLPREDNISOLONE
  12. ACETAMINOPHEN [Concomitant]
     Active Substance: ACETAMINOPHEN
  13. PANTOPRAZOLE [Concomitant]
     Active Substance: PANTOPRAZOLE
  14. AMITRIPTYLINE [Concomitant]
     Active Substance: AMITRIPTYLINE
  15. SKENAN [Concomitant]
     Active Substance: MORPHINE SULFATE

REACTIONS (5)
  - Bicytopenia [Recovered/Resolved]
  - Hepatic cytolysis [Recovering/Resolving]
  - Stomatitis [Recovered/Resolved]
  - Acute kidney injury [Recovering/Resolving]
  - Underdose [Unknown]

NARRATIVE: CASE EVENT DATE: 20220819
